FAERS Safety Report 7217011-3 (Version None)
Quarter: 2011Q1

REPORT INFORMATION
  Report Type: 
  Country: None (occurrence: None)
  Receive Date: 20110110
  Receipt Date: 20101228
  Transmission Date: 20110831
  Serious: Yes (Death)
  Sender: FDA-Public Use
  Company Number: JP-PFIZER INC-2010179752

PATIENT
  Age: 71 Year
  Sex: Male
  Weight: 57.8 kg

DRUGS (5)
  1. LINEZOLID [Suspect]
     Dosage: 600 MG, 1X/DAY
     Route: 048
     Dates: start: 20071130, end: 20071130
  2. ELASPOL [Concomitant]
     Indication: PNEUMONIA
     Dosage: 300 MG, 1X/DAY
     Route: 042
  3. SIGMART [Concomitant]
     Indication: CARDIAC FAILURE
     Dosage: 5 MG, 3X/DAY
     Route: 048
  4. LINEZOLID [Suspect]
     Dosage: 600 MG, 2X/DAY
     Route: 048
     Dates: start: 20071201, end: 20071205
  5. LINEZOLID [Suspect]
     Indication: PNEUMONIA
     Dosage: 600 MG, 2X/DAY
     Route: 041
     Dates: start: 20071128, end: 20071129

REACTIONS (1)
  - PNEUMONIA [None]
